FAERS Safety Report 18378356 (Version 1)
Quarter: 2020Q4

REPORT INFORMATION
  Report Type: Spontaneous
  Country: US (occurrence: US)
  Receive Date: 20201013
  Receipt Date: 20201013
  Transmission Date: 20210114
  Serious: Yes (Hospitalization)
  Sender: FDA-Public Use
  Company Number: US-VERTEX PHARMACEUTICALS-2020-019939

PATIENT
  Age: 18 Year
  Sex: Male

DRUGS (33)
  1. MELATONIN [Concomitant]
     Active Substance: MELATONIN
     Dosage: 1 MILLIGRAM
  2. POTASSIUM CITRATE CITRIC ACID [Concomitant]
     Dosage: UNK
  3. FERROUS SULFATE. [Concomitant]
     Active Substance: FERROUS SULFATE
     Dosage: 325 MILLIGRAM
  4. MIRALAX [Concomitant]
     Active Substance: POLYETHYLENE GLYCOL 3350
     Dosage: 17 GRAM
  5. VITAMIN D3 [Concomitant]
     Active Substance: CHOLECALCIFEROL
     Dosage: 1000 INTERNATIONAL UNIT
  6. TRIKAFTA [Suspect]
     Active Substance: ELEXACAFTOR\IVACAFTOR\TEZACAFTOR
     Indication: CYSTIC FIBROSIS
     Dosage: 100MG ELEXACAFTOR/ 50MG TEZACAFTOR/ 75MG IVACAFTOR AND 150MG IVACAFTOR BID
     Route: 048
  7. GUANFACINE. [Concomitant]
     Active Substance: GUANFACINE
     Dosage: 1 MILLIGRAM
  8. PULMOZYME [Concomitant]
     Active Substance: DORNASE ALFA
     Dosage: 2.5 MILLIGRAM DAILY
  9. CREON [Concomitant]
     Active Substance: PANCRELIPASE AMYLASE\PANCRELIPASE LIPASE\PANCRELIPASE PROTEASE
     Dosage: 24/76/120K
  10. MEPHYTON [Concomitant]
     Active Substance: PHYTONADIONE
     Dosage: 5 MILLIGRAM
  11. DIASTAT ACUDIAL [Concomitant]
     Active Substance: DIAZEPAM
     Dosage: 2.5 MILLIGRAM
  12. ONFI [Concomitant]
     Active Substance: CLOBAZAM
     Dosage: 10 MILLIGRAM
  13. PULMOZYME [Concomitant]
     Active Substance: DORNASE ALFA
     Dosage: 1 MILLIGRAM PER MILLILITRE
  14. BENZOYL PEROXIDE. [Concomitant]
     Active Substance: BENZOYL PEROXIDE
     Dosage: 10 %
  15. ZYVOX [Concomitant]
     Active Substance: LINEZOLID
     Dosage: 600 MILLIGRAM
  16. LAMOTRIGINE. [Concomitant]
     Active Substance: LAMOTRIGINE
     Dosage: 100 MILLIGRAM
  17. VENTOLIN HFA [Concomitant]
     Active Substance: ALBUTEROL SULFATE
     Dosage: 90 MICROGRAM
  18. ACETAMINOPHEN. [Concomitant]
     Active Substance: ACETAMINOPHEN
     Dosage: 325 MILLIGRAM
  19. EPIPEN [Concomitant]
     Active Substance: EPINEPHRINE
     Dosage: 0.3MG/ 0.3
  20. VALIUM [Concomitant]
     Active Substance: DIAZEPAM
     Dosage: 10 MILLIGRAM
  21. TRETINOIN. [Concomitant]
     Active Substance: TRETINOIN
     Dosage: 0.025 %
  22. BANZEL [Concomitant]
     Active Substance: RUFINAMIDE
     Dosage: 200 MILLIGRAM
  23. PREVACID [Concomitant]
     Active Substance: LANSOPRAZOLE
     Dosage: 15 MILLIGRAM
  24. ZANTAC [Concomitant]
     Active Substance: RANITIDINE HYDROCHLORIDE
     Dosage: 75 MILLIGRAM
  25. VIMPAT [Concomitant]
     Active Substance: LACOSAMIDE
     Dosage: 10 MILLIGRAM PER MILLILITRE
  26. BACTRIM DS [Concomitant]
     Active Substance: SULFAMETHOXAZOLE\TRIMETHOPRIM
     Dosage: 800-160 MG
  27. DOXYCYCLINE MONOHYDRATE [Concomitant]
     Active Substance: DOXYCYCLINE
     Dosage: UNK
  28. ALBUTEROL SULFATE. [Concomitant]
     Active Substance: ALBUTEROL SULFATE
     Dosage: UNK
  29. ZONEGRAN [Concomitant]
     Active Substance: ZONISAMIDE
     Dosage: 25 MILLIGRAM
  30. OMEPRAZOLE. [Concomitant]
     Active Substance: OMEPRAZOLE
     Dosage: 20 MILLIGRAM
  31. HEPARIN FLUSH [Concomitant]
     Active Substance: HEPARIN SODIUM
     Dosage: UNK
  32. SODIUM CHLORIDE. [Concomitant]
     Active Substance: SODIUM CHLORIDE
     Dosage: 9 %
  33. HYPERSAL [Concomitant]
     Active Substance: SODIUM CHLORIDE
     Dosage: 7 %

REACTIONS (1)
  - Hospitalisation [Unknown]

NARRATIVE: CASE EVENT DATE: 20200930
